FAERS Safety Report 16231397 (Version 2)
Quarter: 2024Q2

REPORT INFORMATION
  Report Type: Spontaneous
  Country: PL (occurrence: PL)
  Receive Date: 20190424
  Receipt Date: 20240429
  Transmission Date: 20240716
  Serious: Yes (Other)
  Sender: FDA-Public Use
  Company Number: PL-MLMSERVICE-20190409-1702701-1

PATIENT
  Age: 60 Year
  Sex: Female

DRUGS (9)
  1. CAPECITABINE [Suspect]
     Active Substance: CAPECITABINE
     Indication: Metastases to skin
     Dosage: ON DAYS 1-14, IN CYCLES EVERY 3 WEEKS
     Route: 048
  2. DOCETAXEL [Suspect]
     Active Substance: DOCETAXEL\DOCETAXEL ANHYDROUS
     Indication: Invasive breast carcinoma
     Dosage: 6 AT REGIMEN 75 MG/M2, EVERY 3 WEEKS
  3. LETROZOLE [Suspect]
     Active Substance: LETROZOLE
     Indication: Invasive breast carcinoma
  4. PACLITAXEL [Suspect]
     Active Substance: PACLITAXEL
     Indication: Invasive breast carcinoma
  5. DOXORUBICIN [Suspect]
     Active Substance: DOXORUBICIN
     Indication: Invasive breast carcinoma
     Dosage: 6 AT REGIMEN 50 MG/M2, EVERY 3 WEEKS
  6. VINORELBINE [Suspect]
     Active Substance: VINORELBINE TARTRATE
     Indication: Metastases to skin
     Dosage: ON DAYS 1 AND 8, IN CYCLES EVERY 3 WEEKS
     Route: 048
  7. BLEOMYCIN [Suspect]
     Active Substance: BLEOMYCIN SULFATE
     Indication: Metastases to skin
     Dosage: THERAPY WAS DIVIDED INTO 3 STAGES
     Route: 042
  8. FULVESTRANT [Concomitant]
     Active Substance: FULVESTRANT
     Indication: Metastases to skin
  9. FULVESTRANT [Concomitant]
     Active Substance: FULVESTRANT
     Indication: Invasive breast carcinoma

REACTIONS (7)
  - Skin infection [Unknown]
  - Skin ulcer [Unknown]
  - Haematotoxicity [Unknown]
  - Post thrombotic syndrome [Unknown]
  - Deep vein thrombosis [Unknown]
  - Infection [Unknown]
  - Off label use [Unknown]
